FAERS Safety Report 4385707-7 (Version None)
Quarter: 2004Q2

REPORT INFORMATION
  Report Type: 
  Country: None (occurrence: None)
  Receive Date: 20040625
  Receipt Date: 20040625
  Transmission Date: 20050107
  Serious: Yes (Hospitalization)
  Sender: FDA-Public Use
  Company Number: None

PATIENT
  Age: 52 Year
  Sex: Male

DRUGS (1)
  1. DILAUDID [Suspect]
     Dosage: 1 MG/ML IV PCA
     Route: 042

REACTIONS (10)
  - ABDOMINAL PAIN [None]
  - ASPIRATION [None]
  - ATRIAL FIBRILLATION [None]
  - ATRIOVENTRICULAR BLOCK FIRST DEGREE [None]
  - COLITIS [None]
  - CYANOSIS [None]
  - HYPOTENSION [None]
  - PANCREATITIS [None]
  - RESPIRATORY DISORDER [None]
  - VOMITING [None]
